FAERS Safety Report 12472440 (Version 1)
Quarter: 2016Q2

REPORT INFORMATION
  Report Type: Spontaneous
  Country: US (occurrence: US)
  Receive Date: 20160616
  Receipt Date: 20160616
  Transmission Date: 20160815
  Serious: Yes (Other)
  Sender: FDA-Public Use
  Company Number: US-PFIZER INC-2016303433

PATIENT
  Sex: Female

DRUGS (3)
  1. XELJANZ [Suspect]
     Active Substance: TOFACITINIB CITRATE
     Dosage: UNK
  2. ATORVASTATIN [Concomitant]
     Active Substance: ATORVASTATIN
     Dosage: INCREASED A FEW MONTHS AGO
  3. PREDNISONE. [Concomitant]
     Active Substance: PREDNISONE
     Dosage: EARLIER IN MONTH

REACTIONS (1)
  - Blood triglycerides increased [Unknown]
